FAERS Safety Report 9963951 (Version 1)
Quarter: 2014Q1

REPORT INFORMATION
  Report Type: Report from Study
  Country: US (occurrence: US)
  Receive Date: 20140305
  Receipt Date: 20140305
  Transmission Date: 20141002
  Serious: Yes (Other)
  Sender: FDA-Public Use
  Company Number: US-ABBVIE-14P-163-1207162-00

PATIENT
  Sex: Male

DRUGS (10)
  1. HUMIRA [Suspect]
     Indication: PSORIATIC ARTHROPATHY
  2. AMBIEN [Concomitant]
     Indication: INSOMNIA
  3. KLONOPIN [Concomitant]
     Indication: DEPRESSION
     Dosage: AS NEEDED
  4. EFFEXOR [Concomitant]
     Indication: DEPRESSION
     Route: 048
  5. METFORMIN [Concomitant]
     Indication: DIABETES MELLITUS
  6. LOPRESSOR HCT [Concomitant]
     Indication: HYPERTENSION
     Route: 048
  7. PROTONIX [Concomitant]
     Indication: GASTRIC DISORDER
  8. SYNTHROID [Concomitant]
     Indication: THYROID DISORDER
  9. LISINOPRIL [Concomitant]
     Indication: HYPERTENSION
  10. HYDROCHLOROTHIAZIDE [Concomitant]
     Indication: HYPERTENSION

REACTIONS (1)
  - Arthropathy [Recovering/Resolving]
